FAERS Safety Report 22632114 (Version 2)
Quarter: 2023Q2

REPORT INFORMATION
  Report Type: Report from Study
  Country: US (occurrence: US)
  Receive Date: 20230623
  Receipt Date: 20230626
  Transmission Date: 20230721
  Serious: No
  Sender: FDA-Public Use
  Company Number: US-002147023-NVSC2023US143044

PATIENT
  Sex: Female

DRUGS (1)
  1. PIQRAY [Suspect]
     Active Substance: ALPELISIB
     Indication: Product used for unknown indication
     Route: 048
     Dates: start: 20230620

REACTIONS (4)
  - Fatigue [Unknown]
  - Blood glucose increased [Unknown]
  - Dysphagia [Unknown]
  - Decreased appetite [Unknown]
